FAERS Safety Report 8123508-4 (Version None)
Quarter: 2012Q1

REPORT INFORMATION
  Report Type: 
  Country: None (occurrence: None)
  Receive Date: 20120208
  Receipt Date: 20120131
  Transmission Date: 20120608
  Serious: Yes (Hospitalization, Other)
  Sender: FDA-Public Use
  Company Number: PHEH2011US07070

PATIENT
  Sex: Female
  Weight: 60.771 kg

DRUGS (13)
  1. GILENYA [Suspect]
     Dosage: UNK UKN, UNK
     Dates: start: 20111122, end: 20111215
  2. TEMAZEPAM [Concomitant]
     Route: 048
  3. FAMPRIDINE [Suspect]
     Indication: GAIT DISTURBANCE
     Dosage: 10 MG, BID
     Route: 048
     Dates: start: 20110809, end: 20120112
  4. LITHIUM CARBONATE [Concomitant]
     Route: 048
  5. PRIMIDONE [Concomitant]
  6. DEPAKOTE [Concomitant]
  7. VITAMIN D [Concomitant]
     Dosage: UNK UKN, UNK
  8. FOSAMAX [Concomitant]
  9. CALCIUM [Concomitant]
     Dosage: UNK UKN, UNK
  10. SYNTHROID [Concomitant]
  11. PROPRANOLOL [Concomitant]
  12. GILENYA [Suspect]
     Indication: MULTIPLE SCLEROSIS
     Dosage: 0.5 MG, QD
     Route: 048
     Dates: start: 20110907
  13. DOCUSATE SODIUM [Concomitant]

REACTIONS (8)
  - WEIGHT DECREASED [None]
  - FEELING ABNORMAL [None]
  - PARAESTHESIA [None]
  - HYPOAESTHESIA [None]
  - URINARY TRACT INFECTION [None]
  - MIGRAINE [None]
  - ASTHENIA [None]
  - HEART RATE DECREASED [None]
